FAERS Safety Report 26053129 (Version 1)
Quarter: 2025Q4

REPORT INFORMATION
  Report Type: Spontaneous
  Country: US (occurrence: None)
  Receive Date: 20251114
  Receipt Date: 20251114
  Transmission Date: 20260118
  Serious: Yes (Death)
  Sender: FDA-CTU
  Company Number: None

PATIENT
  Age: 65 Year
  Sex: Female

DRUGS (2)
  1. TADALAFIL [Suspect]
     Active Substance: TADALAFIL
     Indication: Pulmonary arterial hypertension
     Dosage: 20MG QD ORAL ?
     Route: 048
     Dates: start: 20240111, end: 20251103
  2. TADALAFIL [Suspect]
     Active Substance: TADALAFIL
     Indication: Heritable pulmonary arterial hypertension

REACTIONS (1)
  - Death [None]

NARRATIVE: CASE EVENT DATE: 20251103
